FAERS Safety Report 20357754 (Version 2)
Quarter: 2022Q1

REPORT INFORMATION
  Report Type: Spontaneous
  Country: US (occurrence: US)
  Receive Date: 20220120
  Receipt Date: 20220204
  Transmission Date: 20220423
  Serious: Yes (Other)
  Sender: FDA-Public Use
  Company Number: US-TEVA-2022-US-2000956

PATIENT
  Sex: Female

DRUGS (1)
  1. DIAZOXIDE [Suspect]
     Active Substance: DIAZOXIDE
     Indication: Glucose transporter type 1 deficiency syndrome
     Route: 065

REACTIONS (2)
  - Fluid retention [Unknown]
  - Weight increased [Unknown]
